FAERS Safety Report 5468645-8 (Version None)
Quarter: 2007Q3

REPORT INFORMATION
  Report Type: 
  Country: None (occurrence: None)
  Receive Date: 20070926
  Receipt Date: 20070925
  Transmission Date: 20080115
  Serious: Yes (Other)
  Sender: FDA-Public Use
  Company Number: A0683777A

PATIENT
  Age: 56 Year
  Sex: Female

DRUGS (4)
  1. ALLI [Suspect]
     Route: 065
     Dates: start: 20070918, end: 20070924
  2. LIPITOR [Concomitant]
  3. SYNTHROID [Concomitant]
  4. ASPIRIN [Concomitant]

REACTIONS (1)
  - RECTAL HAEMORRHAGE [None]
